FAERS Safety Report 16306178 (Version 2)
Quarter: 2021Q1

REPORT INFORMATION
  Report Type: Spontaneous
  Country: US (occurrence: US)
  Receive Date: 20190513
  Receipt Date: 20210302
  Transmission Date: 20210419
  Serious: Yes (Other)
  Sender: FDA-Public Use
  Company Number: US-ASTRAZENECA-2019SE63697

PATIENT
  Age: 23149 Day
  Sex: Male

DRUGS (58)
  1. ESOMEPRAZOLE. [Suspect]
     Active Substance: ESOMEPRAZOLE MAGNESIUM
     Indication: GASTROOESOPHAGEAL REFLUX DISEASE
     Route: 065
  2. ENALAPRIL [Concomitant]
     Active Substance: ENALAPRIL
     Indication: CARDIAC DISORDER
  3. ZANTAC [Concomitant]
     Active Substance: RANITIDINE HYDROCHLORIDE
     Dates: start: 1996, end: 2012
  4. CIALIS [Concomitant]
     Active Substance: TADALAFIL
  5. HYDROCHLORIDE [Concomitant]
     Active Substance: UNSPECIFIED INGREDIENT
  6. DEXILANT [Concomitant]
     Active Substance: DEXLANSOPRAZOLE
  7. AMLODIPINE [Concomitant]
     Active Substance: AMLODIPINE BESYLATE
  8. AMOXICILLIN. [Concomitant]
     Active Substance: AMOXICILLIN
  9. CENTRUM [Concomitant]
     Active Substance: VITAMINS
  10. BETHANECHOL [Concomitant]
     Active Substance: BETHANECHOL
  11. GLUCOSE [Concomitant]
     Active Substance: DEXTROSE
  12. ESOMEPRAZOLE. [Suspect]
     Active Substance: ESOMEPRAZOLE MAGNESIUM
     Indication: GASTROOESOPHAGEAL REFLUX DISEASE
     Route: 065
  13. ACIPHEX [Suspect]
     Active Substance: RABEPRAZOLE SODIUM
     Indication: GASTROOESOPHAGEAL REFLUX DISEASE
     Route: 065
     Dates: start: 2008
  14. ACIPHEX [Suspect]
     Active Substance: RABEPRAZOLE SODIUM
     Indication: GASTROOESOPHAGEAL REFLUX DISEASE
     Route: 065
     Dates: start: 2008
  15. ATENOLOL. [Concomitant]
     Active Substance: ATENOLOL
  16. PRILOSEC [Suspect]
     Active Substance: OMEPRAZOLE MAGNESIUM
     Indication: GASTROOESOPHAGEAL REFLUX DISEASE
     Route: 048
     Dates: start: 1996, end: 2012
  17. FUROSEMIDE. [Concomitant]
     Active Substance: FUROSEMIDE
  18. PRAVASTATIN. [Concomitant]
     Active Substance: PRAVASTATIN
     Indication: CARDIAC DISORDER
  19. VIAGRA [Concomitant]
     Active Substance: SILDENAFIL CITRATE
  20. FAMOTIDINE. [Concomitant]
     Active Substance: FAMOTIDINE
  21. METFORMIN [Concomitant]
     Active Substance: METFORMIN HYDROCHLORIDE
  22. MULTIVITAMINS [Concomitant]
     Active Substance: VITAMINS
  23. TESTOSTERONE. [Concomitant]
     Active Substance: TESTOSTERONE
  24. AMOXICILLIN. [Concomitant]
     Active Substance: AMOXICILLIN
  25. TUMS [Concomitant]
     Active Substance: CALCIUM CARBONATE
     Dates: start: 2012
  26. CRESTOR [Concomitant]
     Active Substance: ROSUVASTATIN CALCIUM
  27. TRAMADOL. [Concomitant]
     Active Substance: TRAMADOL
  28. PACERONE [Concomitant]
     Active Substance: AMIODARONE HYDROCHLORIDE
  29. ONDANSETRON [Concomitant]
     Active Substance: ONDANSETRON
  30. CEPHALEXIN. [Concomitant]
     Active Substance: CEPHALEXIN
  31. APIXABAN [Concomitant]
     Active Substance: APIXABAN
  32. DILTIAZEM. [Concomitant]
     Active Substance: DILTIAZEM
  33. OMEGA 3 [Concomitant]
     Active Substance: OMEGA-3 FATTY ACIDS
  34. ZOLPIDEM TARTRATE. [Concomitant]
     Active Substance: ZOLPIDEM TARTRATE
  35. PROTONIX [Suspect]
     Active Substance: PANTOPRAZOLE SODIUM
     Indication: GASTROOESOPHAGEAL REFLUX DISEASE
     Route: 065
     Dates: start: 2000, end: 2012
  36. PROTONIX [Suspect]
     Active Substance: PANTOPRAZOLE SODIUM
     Indication: GASTROOESOPHAGEAL REFLUX DISEASE
     Dosage: GENERIC
     Route: 065
     Dates: start: 2012, end: 2018
  37. TUMS [Concomitant]
     Active Substance: CALCIUM CARBONATE
     Dates: start: 2011
  38. ROLAIDS [Concomitant]
     Active Substance: CALCIUM CARBONATE\MAGNESIUM HYDROXIDE
     Dates: start: 2011
  39. ZOLPIDEM [Concomitant]
     Active Substance: ZOLPIDEM TARTRATE
  40. WARFARIN [Concomitant]
     Active Substance: WARFARIN
  41. AXIRON [Concomitant]
     Active Substance: TESTOSTERONE
  42. WARFARIN [Concomitant]
     Active Substance: WARFARIN
  43. LANSOPRAZOLE. [Suspect]
     Active Substance: LANSOPRAZOLE
     Indication: GASTROOESOPHAGEAL REFLUX DISEASE
     Route: 065
  44. CIPROFLOXACIN. [Concomitant]
     Active Substance: CIPROFLOXACIN
  45. PLAVIX [Concomitant]
     Active Substance: CLOPIDOGREL BISULFATE
  46. LEVOTHYROXINE. [Concomitant]
     Active Substance: LEVOTHYROXINE
  47. POTASSIUM CHLORIDE. [Concomitant]
     Active Substance: POTASSIUM CHLORIDE
  48. RESTORIL [Concomitant]
     Active Substance: TEMAZEPAM
  49. PHENERGAN [Concomitant]
     Active Substance: PROMETHAZINE HYDROCHLORIDE
  50. TAMSULOSIN [Concomitant]
     Active Substance: TAMSULOSIN
  51. PRILOSEC [Suspect]
     Active Substance: OMEPRAZOLE MAGNESIUM
     Indication: GASTROOESOPHAGEAL REFLUX DISEASE
     Dosage: GENERIC
     Route: 065
     Dates: start: 2008, end: 2011
  52. LISINOPRIL. [Concomitant]
     Active Substance: LISINOPRIL
  53. ASPIRIN. [Concomitant]
     Active Substance: ASPIRIN
     Indication: GASTROOESOPHAGEAL REFLUX DISEASE
     Dates: start: 1996, end: 2012
  54. ROLAIDS [Concomitant]
     Active Substance: CALCIUM CARBONATE\MAGNESIUM HYDROXIDE
     Dates: start: 2012
  55. ERYTHROCIN [Concomitant]
     Active Substance: ERYTHROMYCIN LACTOBIONATE
  56. LANSOPRAZOLE. [Suspect]
     Active Substance: LANSOPRAZOLE
     Indication: GASTROOESOPHAGEAL REFLUX DISEASE
     Route: 065
  57. DOFETILIDE. [Concomitant]
     Active Substance: DOFETILIDE
  58. REGLAN [Concomitant]
     Active Substance: METOCLOPRAMIDE HYDROCHLORIDE

REACTIONS (4)
  - Renal failure [Unknown]
  - Chronic kidney disease [Not Recovered/Not Resolved]
  - Gastrooesophageal reflux disease [Not Recovered/Not Resolved]
  - Impaired gastric emptying [Not Recovered/Not Resolved]

NARRATIVE: CASE EVENT DATE: 20100707
